FAERS Safety Report 8845129 (Version 1)
Quarter: 2012Q4

REPORT INFORMATION
  Report Type: Spontaneous
  Country: GB (occurrence: None)
  Receive Date: 20121015
  Receipt Date: 20121015
  Transmission Date: 20130627
  Serious: Yes (Other)
  Sender: FDA-Public Use
  Company Number: 2012P1060559

PATIENT
  Age: 8 Year
  Sex: Male

DRUGS (3)
  1. DEXAMETHASONE [Suspect]
     Indication: ACUTE LYMPHOBLASTIC LEUKAEMIA
     Dosage: 6 MG/M^2;QD;PO
     Route: 048
  2. PEG ASPARAGINASE [Suspect]
     Indication: ACUTE LYMPHOBLASTIC LEUKAEMIA
     Dosage: 1000  IU/M^2;    ; IM
     Route: 030
  3. VINCRISTINE [Concomitant]

REACTIONS (1)
  - Hyponatraemia [None]
